FAERS Safety Report 21882212 (Version 1)
Quarter: 2023Q1

REPORT INFORMATION
  Report Type: Spontaneous
  Country: IT (occurrence: IT)
  Receive Date: 20230119
  Receipt Date: 20230119
  Transmission Date: 20230417
  Serious: Yes (Life-Threatening, Hospitalization)
  Sender: FDA-Public Use
  Company Number: IT-MINISAL02-901564

PATIENT
  Age: 39 Year
  Sex: Female

DRUGS (2)
  1. OLANZAPINE [Suspect]
     Active Substance: OLANZAPINE
     Indication: Product used for unknown indication
     Dosage: DOSAGE: 10 UNIT OF MEASUREMENT: MILLIGRAMS
     Route: 065
  2. VENLAFAXINE HYDROCHLORIDE [Suspect]
     Active Substance: VENLAFAXINE HYDROCHLORIDE
     Indication: Product used for unknown indication
     Dosage: UNIT OF MEASURE: MILLIGRAMS
     Route: 065

REACTIONS (2)
  - Toxicity to various agents [Recovered/Resolved with Sequelae]
  - Sopor [Recovering/Resolving]

NARRATIVE: CASE EVENT DATE: 20221105
